FAERS Safety Report 7916745-2 (Version None)
Quarter: 2011Q4

REPORT INFORMATION
  Report Type: 
  Country: None (occurrence: None)
  Receive Date: 20111116
  Receipt Date: 20111105
  Transmission Date: 20120403
  Serious: Yes (Other)
  Sender: FDA-Public Use
  Company Number: US-BAYER-2010-008609

PATIENT
  Age: 22 Year
  Sex: Female
  Weight: 56.689 kg

DRUGS (3)
  1. YASMIN [Suspect]
     Indication: ACNE
     Dosage: UNK
     Dates: start: 20061115, end: 20071001
  2. ALLEGRA [Concomitant]
     Dosage: 180 MG, DAILY
     Route: 048
  3. PRILOSEC [Concomitant]
     Dosage: 20 MG, DAILY
     Route: 048

REACTIONS (8)
  - ABDOMINAL RIGIDITY [None]
  - POST CHOLECYSTECTOMY SYNDROME [None]
  - BILIARY COLIC [None]
  - ABDOMINAL DISTENSION [None]
  - BACK PAIN [None]
  - ANXIETY [None]
  - CHOLELITHIASIS [None]
  - ABDOMINAL PAIN [None]
